FAERS Safety Report 6250573-1 (Version None)
Quarter: 2009Q2

REPORT INFORMATION
  Report Type: 
  Country: None (occurrence: None)
  Receive Date: 20090630
  Receipt Date: 20090622
  Transmission Date: 20091009
  Serious: Yes (Hospitalization, Other)
  Sender: FDA-Public Use
  Company Number: DE-PFIZER INC-2009204279

PATIENT
  Age: 63 Year

DRUGS (4)
  1. SUTENT [Suspect]
     Indication: GASTROINTESTINAL STROMAL TUMOUR
     Dosage: 37.5 MG, 1X/DAY
     Route: 048
     Dates: start: 20070101
  2. L-THYROXIN [Concomitant]
     Dosage: 125 UG, EVERY DAY
     Route: 048
  3. BELOC-ZOK MITE [Concomitant]
     Dosage: UNK
     Route: 048
  4. BLOPRESS [Concomitant]
     Dosage: 16/12.5, EVERY DAY
     Route: 048
     Dates: start: 20081001

REACTIONS (1)
  - CONGESTIVE CARDIOMYOPATHY [None]
